FAERS Safety Report 13168744 (Version 1)
Quarter: 2017Q1

REPORT INFORMATION
  Report Type: Spontaneous
  Country: US (occurrence: US)
  Receive Date: 20170131
  Receipt Date: 20170131
  Transmission Date: 20170428
  Serious: No
  Sender: FDA-Public Use
  Company Number: US-PFIZER INC-2017036146

PATIENT
  Sex: Female

DRUGS (4)
  1. LAMOTRIGINE. [Interacting]
     Active Substance: LAMOTRIGINE
     Indication: ANXIETY
  2. LAMOTRIGINE. [Interacting]
     Active Substance: LAMOTRIGINE
     Indication: SUICIDE ATTEMPT
  3. GABAPENTIN. [Suspect]
     Active Substance: GABAPENTIN
     Dosage: UNK
  4. LAMOTRIGINE. [Interacting]
     Active Substance: LAMOTRIGINE
     Indication: DEPRESSION
     Dosage: UNK

REACTIONS (3)
  - Dyskinesia [Unknown]
  - Intentional product misuse [Unknown]
  - Drug interaction [Unknown]
